FAERS Safety Report 21069059 (Version 1)
Quarter: 2022Q3

REPORT INFORMATION
  Report Type: Spontaneous
  Country: CN (occurrence: None)
  Receive Date: 20220712
  Receipt Date: 20220712
  Transmission Date: 20221027
  Serious: Yes (Hospitalization, Other)
  Sender: FDA-Public Use
  Company Number: 2022A247868

PATIENT
  Age: 60 Year
  Sex: Female
  Weight: 60 kg

DRUGS (3)
  1. OSIMERTINIB MESYLATE [Suspect]
     Active Substance: OSIMERTINIB MESYLATE
     Indication: Lung neoplasm malignant
     Route: 048
     Dates: start: 20220620, end: 20220622
  2. GEFITINIB [Concomitant]
     Active Substance: GEFITINIB
     Route: 065
  3. AUMOLERTINIB [Concomitant]
     Active Substance: AUMOLERTINIB
     Route: 048

REACTIONS (4)
  - Myelosuppression [Recovering/Resolving]
  - Agranulocytosis [Unknown]
  - Malignant neoplasm progression [Unknown]
  - Drug resistance [Unknown]

NARRATIVE: CASE EVENT DATE: 20220622
